FAERS Safety Report 7418825-7 (Version None)
Quarter: 2011Q2

REPORT INFORMATION
  Report Type: 
  Country: None (occurrence: None)
  Receive Date: 20110415
  Receipt Date: 20110405
  Transmission Date: 20111010
  Serious: Yes (Other)
  Sender: FDA-Public Use
  Company Number: Z0007893C

PATIENT
  Sex: Female
  Weight: 73 kg

DRUGS (3)
  1. OFATUMUMAB [Suspect]
     Route: 042
     Dates: start: 20100928, end: 20110118
  2. CYCLOPHOSPHAMIDE [Suspect]
     Route: 042
     Dates: start: 20100928, end: 20110120
  3. FLUDARABINE [Suspect]
     Route: 042
     Dates: start: 20100928, end: 20110120

REACTIONS (1)
  - ILEUS [None]
